FAERS Safety Report 6196914-5 (Version None)
Quarter: 2009Q2

REPORT INFORMATION
  Report Type: 
  Country: None (occurrence: None)
  Receive Date: 20090518
  Receipt Date: 20090430
  Transmission Date: 20091009
  Serious: Yes (Hospitalization)
  Sender: FDA-Public Use
  Company Number: 2009S1007610

PATIENT
  Age: 36 Year
  Sex: Male

DRUGS (9)
  1. AMOXICILLIN CLAVULANIC ACID (SPEKTRAMOX /02043401/) [Suspect]
     Indication: OROPHARYNGEAL PAIN
     Dosage: 125 MG; Q8H
  2. LAMOTRIGINE [Suspect]
     Dosage: ORAL
     Route: 048
  3. VENLAFAXINE (VENLAFAXINE) (CON.) [Concomitant]
  4. VITAMIN B1 (THIAMINE HYDROCHLORIDE) (CON.) [Concomitant]
  5. VITAMIN B6 (PYRIDOXINE HYDROCHLORIDE) (CON.) [Concomitant]
  6. VITAMIN B12 (CYANOCOBALAMIN) (CON.) [Concomitant]
  7. TIAPRIDAL (TIAPRIDE) (CON.) [Concomitant]
  8. CALCIUM CARBIMIDE (CALCIUM CARBIMIDE) (CON.) [Concomitant]
  9. KETAZOLAM (KETAZOLAM) (CON.) [Concomitant]

REACTIONS (7)
  - HEPATIC NECROSIS [None]
  - HEPATIC STEATOSIS [None]
  - HEPATITIS CHOLESTATIC [None]
  - OESOPHAGEAL CANDIDIASIS [None]
  - ORAL CANDIDIASIS [None]
  - SELF-MEDICATION [None]
  - STEVENS-JOHNSON SYNDROME [None]
